FAERS Safety Report 15333914 (Version 1)
Quarter: 2018Q3

REPORT INFORMATION
  Report Type: Spontaneous
  Country: US (occurrence: US)
  Receive Date: 20180825
  Receipt Date: 20180825
  Transmission Date: 20181010
  Serious: Yes (Other)
  Sender: FDA-Public Use
  Company Number: None

PATIENT
  Age: 80 Year
  Sex: Male
  Weight: 97.65 kg

DRUGS (1)
  1. LINZESS [Suspect]
     Active Substance: LINACLOTIDE
     Indication: CONSTIPATION
     Dosage: ?          QUANTITY:1 DF DOSAGE FORM;?
     Route: 048

REACTIONS (2)
  - Diarrhoea [None]
  - Drug effect decreased [None]

NARRATIVE: CASE EVENT DATE: 20180825
